FAERS Safety Report 14223471 (Version 2)
Quarter: 2018Q1

REPORT INFORMATION
  Report Type: Report from Study
  Country: None (occurrence: EC)
  Receive Date: 20171124
  Receipt Date: 20180101
  Transmission Date: 20180508
  Serious: Yes (Other)
  Sender: FDA-Public Use
  Company Number: EC-ABBVIE-17K-047-2173453-00

PATIENT
  Sex: Male
  Weight: 70 kg

DRUGS (2)
  1. DICLOFENAC [Concomitant]
     Active Substance: DICLOFENAC
     Indication: PRODUCT USED FOR UNKNOWN INDICATION
  2. HUMIRA [Suspect]
     Active Substance: ADALIMUMAB
     Indication: COLITIS ULCERATIVE
     Route: 058
     Dates: start: 20150617

REACTIONS (3)
  - Malaise [Unknown]
  - Gastrointestinal polyp [Recovering/Resolving]
  - Abdominal pain upper [Unknown]
